FAERS Safety Report 5868056-7 (Version None)
Quarter: 2008Q3

REPORT INFORMATION
  Report Type: 
  Country: None (occurrence: None)
  Receive Date: 20080902
  Receipt Date: 20080821
  Transmission Date: 20090109
  Serious: Yes (Death)
  Sender: FDA-Public Use
  Company Number: US-PFIZER INC-2008062000

PATIENT
  Sex: Female

DRUGS (1)
  1. VFEND [Suspect]
     Indication: GASTROINTESTINAL INFECTION

REACTIONS (1)
  - MYELOID LEUKAEMIA [None]
